FAERS Safety Report 12239512 (Version 2)
Quarter: 2016Q2

REPORT INFORMATION
  Report Type: Spontaneous
  Country: JP (occurrence: JP)
  Receive Date: 20160405
  Receipt Date: 20160509
  Transmission Date: 20160815
  Serious: Yes (Hospitalization)
  Sender: FDA-Public Use
  Company Number: JP-FERRINGPH-2016FE01468

PATIENT

DRUGS (6)
  1. MENOGON [Suspect]
     Active Substance: MENOTROPINS
     Indication: OVULATION INDUCTION
     Dosage: 150 IU, DAILY
     Route: 030
  2. GOSERELIN ACETATE [Concomitant]
     Active Substance: GOSERELIN ACETATE
     Indication: PRODUCT USED FOR UNKNOWN INDICATION
     Route: 058
  3. GONAPURE [Suspect]
     Active Substance: MENOTROPINS
     Indication: OVULATION INDUCTION
     Route: 065
  4. PROGESTERONE. [Concomitant]
     Active Substance: PROGESTERONE
     Indication: PRODUCT USED FOR UNKNOWN INDICATION
     Route: 030
  5. CLOMIFENE CITRATE [Suspect]
     Active Substance: CLOMIPHENE
     Indication: OVULATION INDUCTION
     Dosage: 50 MG, DAILY
     Route: 048
  6. ESTROGEN [Concomitant]
     Active Substance: ESTRONE\SUS SCROFA OVARY
     Indication: PRODUCT USED FOR UNKNOWN INDICATION
     Route: 065

REACTIONS (1)
  - Peritoneal cyst [Recovering/Resolving]
